FAERS Safety Report 15813934 (Version 1)
Quarter: 2019Q1

REPORT INFORMATION
  Report Type: Spontaneous
  Country: US (occurrence: US)
  Receive Date: 20190111
  Receipt Date: 20190111
  Transmission Date: 20190417
  Serious: Yes (Other)
  Sender: FDA-Public Use
  Company Number: US-SA-2019SA007339

PATIENT
  Age: 43 Year
  Sex: Female
  Weight: 140.61 kg

DRUGS (21)
  1. ZOFRAN [Concomitant]
     Active Substance: ONDANSETRON HYDROCHLORIDE
     Dosage: 1 DF, PRN
     Route: 048
     Dates: start: 20170209
  2. GALAFOLD [Concomitant]
     Active Substance: MIGALASTAT HYDROCHLORIDE
     Indication: FABRY^S DISEASE
     Dosage: 123 MG, QOD
     Route: 048
     Dates: start: 20181113
  3. FUROSEMIDE. [Concomitant]
     Active Substance: FUROSEMIDE
     Dosage: 1 DF, PRN
     Route: 048
     Dates: start: 20181018
  4. PEPTO-BISMOL [Concomitant]
     Active Substance: BISMUTH SUBSALICYLATE
     Dosage: 1 DF, PRN
     Route: 048
     Dates: start: 20181018
  5. LISINOPRIL. [Concomitant]
     Active Substance: LISINOPRIL
     Dosage: 1 DF, QD
     Route: 048
     Dates: start: 20170209
  6. ZANTAC [Concomitant]
     Active Substance: RANITIDINE HYDROCHLORIDE
     Dosage: 1 DF, BID
     Route: 048
     Dates: start: 20181018
  7. TRAZODONE [Concomitant]
     Active Substance: TRAZODONE HYDROCHLORIDE
     Dosage: 1 DF, HS
     Route: 048
     Dates: start: 20170209
  8. BUSPIRONE [Concomitant]
     Active Substance: BUSPIRONE HYDROCHLORIDE
     Dosage: 1 DF, BID
     Route: 048
     Dates: start: 20170209
  9. EFFEXOR [Concomitant]
     Active Substance: VENLAFAXINE HYDROCHLORIDE
     Dosage: 1 DF, QD
     Route: 048
     Dates: start: 20170209
  10. VITAMIN D2 [Concomitant]
     Active Substance: ERGOCALCIFEROL
     Dosage: 1 DF, BIW
     Route: 048
     Dates: start: 20170209
  11. NORCO [Concomitant]
     Active Substance: ACETAMINOPHEN\HYDROCODONE BITARTRATE
     Dosage: 1 DF, Q4+6H
     Route: 048
     Dates: start: 20170209
  12. FABRAZYME [Suspect]
     Active Substance: AGALSIDASE BETA
     Indication: FABRY^S DISEASE
     Dosage: 145 MG, QOW
     Route: 041
     Dates: start: 20170209
  13. DIFLUCAN [Concomitant]
     Active Substance: FLUCONAZOLE
     Dosage: 1 DF, PRN
     Route: 048
     Dates: start: 20170209
  14. TEGRETOL [Concomitant]
     Active Substance: CARBAMAZEPINE
     Dosage: 4 DF, QD
     Route: 048
     Dates: start: 20181018
  15. CLONAZEPAM. [Concomitant]
     Active Substance: CLONAZEPAM
     Dosage: 1 DF, QD
     Route: 048
     Dates: start: 20181018
  16. MECLIZINE [Concomitant]
     Active Substance: MECLIZINE HYDROCHLORIDE
     Dosage: 1 DF, PRN
     Route: 048
     Dates: start: 20181018
  17. ASPIRIN [ACETYLSALICYLIC ACID] [Concomitant]
     Active Substance: ASPIRIN
     Dosage: 1 DF, QD
     Route: 048
     Dates: start: 20170209
  18. LYRICA [Concomitant]
     Active Substance: PREGABALIN
     Dosage: 1 DF, BID
     Route: 048
     Dates: start: 20170209
  19. BENTYL [Concomitant]
     Active Substance: DICYCLOMINE HYDROCHLORIDE
     Dosage: 1 DF, TID
     Route: 048
     Dates: start: 20170209
  20. TOVIAZ [Concomitant]
     Active Substance: FESOTERODINE FUMARATE
     Dosage: 1 DF, QD
     Route: 048
     Dates: start: 20181018
  21. TIZANIDINE. [Concomitant]
     Active Substance: TIZANIDINE
     Dosage: 1 DF, HS
     Route: 048
     Dates: start: 20180209

REACTIONS (4)
  - Condition aggravated [Unknown]
  - Neuropathy peripheral [Unknown]
  - Ear pain [Unknown]
  - Headache [Unknown]
